FAERS Safety Report 8085050 (Version 10)
Quarter: 2013Q1

REPORT INFORMATION
  Report Type: Report from Study
  Country: AU (occurrence: AU)
  Receive Date: 20110810
  Receipt Date: 20130322
  Transmission Date: 20140127
  Serious: Yes (Death, Disabling)
  Sender: FDA-Public Use
  Company Number: AU-CELGENEUS-008-C5013-11072928

PATIENT
  Age: 59 Year
  Sex: Male
  Weight: 70 kg

DRUGS (15)
  1. CC-5013 [Suspect]
     Indication: CHRONIC LYMPHOCYTIC LEUKAEMIA
     Dosage: 2.5 MILLIGRAM
     Route: 048
     Dates: start: 20110509
  2. CC-5013 [Suspect]
     Dosage: 2.5 MILLIGRAM
     Route: 048
     Dates: start: 20110627, end: 20110714
  3. MOVICOL [Concomitant]
     Indication: CONSTIPATION
     Dosage: 1 SACHET
     Route: 048
     Dates: start: 20110729, end: 20110730
  4. DIPROSONE [Concomitant]
     Indication: RASH
     Route: 061
     Dates: start: 20110716
  5. SIGMACORT [Concomitant]
     Indication: RASH
     Route: 061
     Dates: start: 20110715
  6. AVENO [Concomitant]
     Indication: RASH
     Route: 061
     Dates: start: 20110704
  7. THIAMIN [Concomitant]
     Indication: NUTRITIONAL SUPPLEMENTATION
     Dosage: 100 MILLIGRAM
     Route: 048
     Dates: start: 20110726
  8. PANTOPRAZOLE [Concomitant]
     Indication: GASTROOESOPHAGEAL REFLUX DISEASE
     Dosage: 40 MILLIGRAM
     Route: 048
     Dates: start: 20110728
  9. PANADEINE FORTE [Concomitant]
     Indication: PAIN
     Dosage: 2 TABLET
     Route: 048
     Dates: start: 20110727, end: 20110801
  10. COLOXYL + SENNA [Concomitant]
     Indication: CONSTIPATION
     Dosage: 2 TABLET
     Route: 048
     Dates: start: 20110727, end: 20110727
  11. OMEPRAZOLE [Concomitant]
     Indication: GASTROOESOPHAGEAL REFLUX DISEASE
     Dosage: 20 MILLIGRAM
     Route: 048
     Dates: start: 20110728, end: 20110728
  12. VITAMIN B12 [Concomitant]
     Indication: NUTRITIONAL SUPPLEMENTATION
     Dosage: 1000 MICROGRAM
     Route: 030
     Dates: start: 20110727, end: 20110801
  13. INTRAGAM P [Concomitant]
     Indication: CHRONIC LYMPHOCYTIC LEUKAEMIA
     Dosage: 1.1786 GRAM
     Route: 041
     Dates: start: 20110117
  14. CELESTONE M [Concomitant]
     Indication: RASH
     Dosage: .6
     Route: 061
     Dates: start: 20110704
  15. CELESTONE M [Concomitant]
     Indication: SKIN EXFOLIATION
     Route: 061

REACTIONS (3)
  - Optic neuropathy [Fatal]
  - Peripheral motor neuropathy [Fatal]
  - Tremor [Fatal]
